FAERS Safety Report 4873663-4 (Version None)
Quarter: 2006Q1

REPORT INFORMATION
  Report Type: 
  Country: None (occurrence: None)
  Receive Date: 20060103
  Receipt Date: 20060103
  Transmission Date: 20060701
  Serious: Yes (Life-Threatening, Hospitalization)
  Sender: FDA-Public Use
  Company Number: None

PATIENT
  Age: 55 Year
  Sex: Male
  Weight: 76.2043 kg

DRUGS (1)
  1. LEVOFLOXACIN [Suspect]
     Indication: CHOLANGITIS
     Dosage: 500 MG  DAILY  IV
     Route: 042
     Dates: start: 20051226, end: 20051226

REACTIONS (11)
  - ABDOMINAL PAIN [None]
  - ANAPHYLACTIC REACTION [None]
  - BLOOD PRESSURE SYSTOLIC INCREASED [None]
  - HEART RATE INCREASED [None]
  - NAUSEA [None]
  - PAIN [None]
  - RASH [None]
  - RESPIRATORY RATE DECREASED [None]
  - TREMOR [None]
  - URTICARIA [None]
  - VOMITING [None]
